FAERS Safety Report 18493857 (Version 1)
Quarter: 2020Q4

REPORT INFORMATION
  Report Type: Spontaneous
  Country: US (occurrence: US)
  Receive Date: 20201112
  Receipt Date: 20201112
  Transmission Date: 20210114
  Serious: No
  Sender: FDA-Public Use
  Company Number: US-DRREDDYS-USA/USA/20/0128579

PATIENT
  Age: 36 Year
  Sex: Female
  Weight: 56.25 kg

DRUGS (4)
  1. OLANZAPINE FILM-COATED TABLET 20 MG [Suspect]
     Active Substance: OLANZAPINE
     Indication: GENERALISED TONIC-CLONIC SEIZURE
     Dosage: QHS
     Route: 048
     Dates: start: 202010, end: 20201027
  2. CLONAZEPAM. [Concomitant]
     Active Substance: CLONAZEPAM
     Indication: PRODUCT USED FOR UNKNOWN INDICATION
  3. CITALOPRAM [Concomitant]
     Active Substance: CITALOPRAM HYDROBROMIDE
     Indication: PRODUCT USED FOR UNKNOWN INDICATION
  4. KLONOPIN [Concomitant]
     Active Substance: CLONAZEPAM
     Indication: SEIZURE

REACTIONS (3)
  - Product quality issue [Unknown]
  - Product use in unapproved indication [Unknown]
  - Cerebral disorder [Unknown]
